FAERS Safety Report 22661299 (Version 6)
Quarter: 2023Q4

REPORT INFORMATION
  Report Type: Spontaneous
  Country: US (occurrence: US)
  Receive Date: 20230630
  Receipt Date: 20231010
  Transmission Date: 20240110
  Serious: Yes (Hospitalization, Other)
  Sender: FDA-Public Use
  Company Number: US-VERTEX PHARMACEUTICALS-2023-009284

PATIENT
  Age: 39 Year
  Sex: Male
  Weight: 68 kg

DRUGS (39)
  1. TRIKAFTA [Suspect]
     Active Substance: ELEXACAFTOR\IVACAFTOR\TEZACAFTOR
     Indication: Cystic fibrosis
     Dosage: UNK, QD
     Route: 048
     Dates: start: 20221117, end: 2022
  2. TRIKAFTA [Suspect]
     Active Substance: ELEXACAFTOR\IVACAFTOR\TEZACAFTOR
     Dosage: REGULAR DOSE; 2 TABS (AM) AND 1 TAB (PM)
     Route: 048
     Dates: start: 20221209
  3. TYLENOL [Concomitant]
     Active Substance: ACETAMINOPHEN
     Indication: Headache
     Dosage: UNK, PRN
     Route: 048
  4. TYLENOL [Concomitant]
     Active Substance: ACETAMINOPHEN
     Indication: Back pain
  5. TYLENOL [Concomitant]
     Active Substance: ACETAMINOPHEN
     Indication: Procedural pain
  6. TYLENOL [Concomitant]
     Active Substance: ACETAMINOPHEN
     Indication: Abdominal pain
  7. ZITHROMAX [Concomitant]
     Active Substance: AZITHROMYCIN DIHYDRATE
     Dosage: TAKE 1 TAB ON MON, WED, FRID
     Route: 048
  8. COLOMYCIN [Concomitant]
     Indication: Cystic lung disease
     Dosage: 1 VIAL WITH 2ML OF STERILE WATER
     Dates: start: 20220928
  9. NOVOLOG [Concomitant]
     Active Substance: INSULIN ASPART
     Indication: Cystic fibrosis related diabetes
     Dosage: 100UNIT/ML
     Dates: start: 20220412
  10. LIALDA [Concomitant]
     Active Substance: MESALAMINE
     Indication: Colitis ulcerative
     Dosage: TAKE 4 TAB ONCE A DAY
     Route: 048
     Dates: start: 20230417
  11. FISH OIL [Concomitant]
     Active Substance: FISH OIL
     Indication: Cystic lung disease
     Dosage: TAKE 1 TAB
     Route: 048
     Dates: start: 20230223
  12. PRILOSEC [Concomitant]
     Active Substance: OMEPRAZOLE MAGNESIUM
     Dosage: TAKE 1 CAPSULE EVERYDAY
     Route: 048
     Dates: start: 20230223
  13. ZENPEP [Concomitant]
     Active Substance: PANCRELIPASE AMYLASE\PANCRELIPASE LIPASE\PANCRELIPASE PROTEASE
     Indication: Pancreatic failure
     Dosage: TAKE 7 CAPSULES
     Dates: start: 20230623
  14. PULMOZYME [Concomitant]
     Active Substance: DORNASE ALFA
     Indication: Cystic fibrosis lung
     Dosage: 1 MG
     Dates: start: 202306
  15. PULMOZYME [Concomitant]
     Active Substance: DORNASE ALFA
     Dosage: 2.5 MG
     Dates: start: 20221116, end: 20230622
  16. PULMOZYME [Concomitant]
     Active Substance: DORNASE ALFA
     Dosage: 2.5 MG
     Dates: start: 20230701
  17. SODIUM CHLORIDE [Concomitant]
     Active Substance: SODIUM CHLORIDE
     Dosage: INHALE 1VIAL VIA ONCE DAILY, EVERY 4 HRS
     Dates: start: 20220119
  18. FOSAMAX [Concomitant]
     Active Substance: ALENDRONATE SODIUM
     Indication: Osteoporosis
     Dosage: TAKE 1 TAB ONCE A DAY
     Route: 048
     Dates: start: 20230526
  19. MIRALAX [Concomitant]
     Active Substance: POLYETHYLENE GLYCOL 3350
     Indication: Constipation
     Dosage: 1 PCKT
     Route: 048
  20. OMEPRAZOLE [Concomitant]
     Active Substance: OMEPRAZOLE
     Indication: Gastrooesophageal reflux disease
     Dosage: UNK, QD
     Route: 048
     Dates: start: 20221120, end: 20230623
  21. PROTONIX [Concomitant]
     Active Substance: PANTOPRAZOLE SODIUM
     Indication: Gastrooesophageal reflux disease
     Dosage: UNK
     Route: 048
  22. PROPOFOL [Concomitant]
     Active Substance: PROPOFOL
     Indication: Anaesthesia
     Dosage: 10-20MCG
     Route: 042
     Dates: start: 20230626, end: 20230626
  23. LEVOPHED [Concomitant]
     Active Substance: NOREPINEPHRINE BITARTRATE
     Indication: Anaesthesia
     Dosage: 0.05 MCG
     Route: 042
     Dates: start: 20230626, end: 20230626
  24. FENTANYL [Concomitant]
     Active Substance: FENTANYL
     Indication: Anaesthesia
     Dosage: 100-200MCG
     Route: 042
     Dates: start: 20230626, end: 20230626
  25. OMNIPAQUE [Concomitant]
     Active Substance: IOHEXOL
     Indication: Anaesthesia
     Dosage: 80ML
     Route: 042
     Dates: start: 20230627, end: 20230627
  26. HEPARIN [Concomitant]
     Active Substance: HEPARIN SODIUM
     Indication: Anaesthesia
     Dosage: 5000 UNITS
     Route: 042
     Dates: start: 20230627, end: 20230627
  27. NITROGLYCERIN [Concomitant]
     Active Substance: NITROGLYCERIN
     Indication: Anaesthesia
     Dosage: 200-300MCG
     Route: 042
     Dates: start: 20230627, end: 20230627
  28. SODIUM CHLORIDE [Concomitant]
     Active Substance: SODIUM CHLORIDE
     Dosage: UNK
     Dates: start: 202306
  29. LIDOCAINE [Concomitant]
     Active Substance: LIDOCAINE
     Indication: Anaesthesia
     Dosage: UNK, QD
     Dates: start: 20230627, end: 20230627
  30. ZOFRAN [Concomitant]
     Active Substance: ONDANSETRON HYDROCHLORIDE
     Indication: Anaesthesia
     Dosage: 4MG
     Route: 042
     Dates: start: 20230627, end: 20230627
  31. PHENYLEPHRINE [Concomitant]
     Active Substance: PHENYLEPHRINE HYDROCHLORIDE
     Indication: Anaesthesia
     Dosage: QD
     Route: 042
     Dates: start: 20230627, end: 20230627
  32. CEFAZOLIN [Concomitant]
     Active Substance: CEFAZOLIN
     Indication: Anaesthesia
     Dosage: 2G
     Route: 042
     Dates: start: 20230627, end: 20230627
  33. EPHEDRINE [Concomitant]
     Active Substance: EPHEDRINE
     Indication: Anaesthesia
     Dosage: 10MG
     Route: 042
     Dates: start: 20230627, end: 20230627
  34. VERSED [Concomitant]
     Active Substance: MIDAZOLAM HYDROCHLORIDE
     Indication: Anaesthesia
     Dosage: 2MG
     Route: 042
     Dates: start: 20230627, end: 20230627
  35. ZEMURON [Concomitant]
     Active Substance: ROCURONIUM BROMIDE
     Indication: Anaesthesia
     Dosage: 100MG
     Route: 042
     Dates: start: 20230627, end: 20230627
  36. ALENDRONATE [Concomitant]
     Active Substance: ALENDRONATE SODIUM
     Indication: Osteoporosis
     Dosage: DAILY ON SUNDAYS
     Route: 048
  37. BASAGLAR KWIKPEN [Concomitant]
     Active Substance: INSULIN GLARGINE
     Indication: Cystic fibrosis related diabetes
     Dosage: INSULIN U-1000; 6 UNITS
     Route: 058
     Dates: start: 20221120, end: 20230623
  38. MESALAMINE [Concomitant]
     Active Substance: MESALAMINE
     Indication: Colitis ulcerative
     Dosage: DAILY
  39. DEXTROSE\SODIUM CHLORIDE [Concomitant]
     Active Substance: DEXTROSE\SODIUM CHLORIDE
     Dosage: 30 ML/ HR
     Route: 042
     Dates: start: 20230624, end: 20230624

REACTIONS (4)
  - Haemoptysis [Recovered/Resolved]
  - Bronchial artery hypertrophy [Not Recovered/Not Resolved]
  - Infective pulmonary exacerbation of cystic fibrosis [Not Recovered/Not Resolved]
  - Bronchiectasis [Not Recovered/Not Resolved]

NARRATIVE: CASE EVENT DATE: 20230622
